FAERS Safety Report 16206324 (Version 1)
Quarter: 2019Q2

REPORT INFORMATION
  Report Type: Spontaneous
  Country: CN (occurrence: CN)
  Receive Date: 20190417
  Receipt Date: 20190417
  Transmission Date: 20190711
  Serious: Yes (Hospitalization)
  Sender: FDA-Public Use
  Company Number: CN-BAXTER-2019BAX007299

PATIENT
  Age: 55 Year
  Sex: Female
  Weight: 59 kg

DRUGS (15)
  1. ENDOXAN [Suspect]
     Active Substance: CYCLOPHOSPHAMIDE
     Dosage: 0.9% SODIUM CHLORIDE INJECTION + CYCLOPHOSPHAMIDE, CYCLE 2
     Route: 041
     Dates: start: 20190402, end: 20190402
  2. 0.9% SODIUM CHLORIDE INJECTION [Suspect]
     Active Substance: SODIUM CHLORIDE
     Dosage: 0.9% SODIUM CHLORIDE INJECTION + CYCLOPHOSPHAMIDE, DOSE RE-INTRODUCED
     Route: 041
  3. 5% GLUCOSE  INJECTION [Suspect]
     Active Substance: DEXTROSE
     Dosage: 5% GLUCOSE INJECTION 100 ML + PIRARUBICIN 40 MG DAY 2, CYCLE 1
     Route: 041
     Dates: start: 20190320, end: 20190320
  4. PIRARUBICIN HYDROCHLORIDE [Suspect]
     Active Substance: PIRARUBICIN HYDROCHLORIDE
     Dosage: 5% GLUCOSE INJECTION + PIRARUBICIN, CYCLE 2
     Route: 041
     Dates: start: 20190402, end: 20190402
  5. ENDOXAN [Suspect]
     Active Substance: CYCLOPHOSPHAMIDE
     Indication: BREAST CANCER
     Dosage: 0.9% SODIUM CHLORIDE INJECTION 100 ML + CYCLOPHOSPHAMIDE 900 MG DAY 1, CYCLE 1
     Route: 041
     Dates: start: 20190319, end: 20190319
  6. 0.9% SODIUM CHLORIDE INJECTION [Suspect]
     Active Substance: SODIUM CHLORIDE
     Indication: MEDICATION DILUTION
     Dosage: 0.9% SODIUM CHLORIDE INJECTION 100 ML + CYCLOPHOSPHAMIDE 900 MG, DAY 1, CYCLE 1
     Route: 041
     Dates: start: 20190319, end: 20190319
  7. 0.9% SODIUM CHLORIDE INJECTION [Suspect]
     Active Substance: SODIUM CHLORIDE
     Dosage: 0.9% SODIUM CHLORIDE INJECTION + CYCLOPHOSPHAMIDE, CYCLE 2
     Route: 041
     Dates: start: 20190402, end: 20190402
  8. 5% GLUCOSE  INJECTION [Suspect]
     Active Substance: DEXTROSE
     Indication: MEDICATION DILUTION
     Dosage: 5% GLUCOSE INJECTION 100 ML + PIRARUBICIN 50 MG DAY 1, CYCLE 1
     Route: 041
     Dates: start: 20190319, end: 20190319
  9. PIRARUBICIN HYDROCHLORIDE [Suspect]
     Active Substance: PIRARUBICIN HYDROCHLORIDE
     Dosage: 5% GLUCOSE INJECTION 100 ML + PIRARUBICIN 50 MG, DAY 2, CYCLE 1
     Route: 041
     Dates: start: 20190320, end: 20190320
  10. ENDOXAN [Suspect]
     Active Substance: CYCLOPHOSPHAMIDE
     Dosage: 0.9% SODIUM CHLORIDE INJECTION + CYCLOPHOSPHAMIDE, DOSE RE-INTRODUCED
     Route: 041
  11. PIRARUBICIN HYDROCHLORIDE [Suspect]
     Active Substance: PIRARUBICIN HYDROCHLORIDE
     Indication: BREAST CANCER
     Dosage: 5% GLUCOSE INJECTION 100 ML + PIRARUBICIN 50 MG, DAY 1, CYCLE 1
     Route: 041
     Dates: start: 20190319, end: 20190319
  12. 5% GLUCOSE  INJECTION [Suspect]
     Active Substance: DEXTROSE
     Dosage: 5% GLUCOSE INJECTION + PIRARUBICIN, CYCLE 2
     Route: 041
     Dates: start: 20190402, end: 20190402
  13. 5% GLUCOSE  INJECTION [Suspect]
     Active Substance: DEXTROSE
     Dosage: 5% GLUCOSE INJECTION + PIRARUBICIN, DOSE RE-INTRODUCED
     Route: 041
  14. PIRARUBICIN HYDROCHLORIDE [Suspect]
     Active Substance: PIRARUBICIN HYDROCHLORIDE
     Dosage: 5% GLUCOSE INJECTION + PIRARUBICIN, DOSE RE-INTRODUCED
     Route: 041
  15. PACLITAXEL. [Suspect]
     Active Substance: PACLITAXEL
     Indication: PRODUCT USED FOR UNKNOWN INDICATION
     Route: 065

REACTIONS (1)
  - Bone marrow failure [Recovered/Resolved]

NARRATIVE: CASE EVENT DATE: 20190402
